FAERS Safety Report 18483815 (Version 1)
Quarter: 2020Q4

REPORT INFORMATION
  Report Type: Spontaneous
  Country: DE (occurrence: DE)
  Receive Date: 20201109
  Receipt Date: 20201109
  Transmission Date: 20210114
  Serious: Yes (Other)
  Sender: FDA-Public Use
  Company Number: DE-AUROBINDO-AUR-APL-2020-027554

PATIENT
  Age: 77 Year
  Sex: Female
  Weight: 80 kg

DRUGS (9)
  1. AMISULPRIDE [Concomitant]
     Active Substance: AMISULPRIDE
     Indication: DEMENTIA
     Dosage: 200 MILLIGRAM
     Route: 048
  2. OLANZAPINE 15MG [Suspect]
     Active Substance: OLANZAPINE
     Indication: DELUSIONAL DISORDER, UNSPECIFIED TYPE
     Dosage: 15 MILLIGRAM, DAILY
     Route: 048
  3. RIVASTIGMINE. [Concomitant]
     Active Substance: RIVASTIGMINE
     Indication: PRODUCT USED FOR UNKNOWN INDICATION
     Dosage: 9.5 MILLIGRAM, ONCE A DAY
     Route: 062
  4. OXYGEN. [Concomitant]
     Active Substance: OXYGEN
     Indication: PNEUMONIA HAEMOPHILUS
     Dosage: UNK
     Route: 065
  5. NICOTINE. [Suspect]
     Active Substance: NICOTINE
     Indication: TOBACCO USER
     Dosage: UNK
     Route: 062
  6. ATORVASTATIN [Concomitant]
     Active Substance: ATORVASTATIN
     Indication: PRODUCT USED FOR UNKNOWN INDICATION
     Dosage: 10 MILLIGRAM
     Route: 048
  7. AMPICILLIN;SULBACTAM [Concomitant]
     Active Substance: AMPICILLIN SODIUM\SULBACTAM SODIUM
     Indication: PNEUMONIA HAEMOPHILUS
     Dosage: UNK
     Route: 065
  8. RISPERIDONE. [Suspect]
     Active Substance: RISPERIDONE
     Indication: DELUSIONAL DISORDER, UNSPECIFIED TYPE
     Dosage: 1.5 MILLIGRAM, DAILY
     Route: 065
  9. OLANZAPINE 15MG [Suspect]
     Active Substance: OLANZAPINE
     Dosage: 10 MILLIGRAM, DAILY
     Route: 048

REACTIONS (8)
  - Somnolence [Recovered/Resolved]
  - Off label use [Unknown]
  - Overdose [Recovered/Resolved]
  - Electrocardiogram abnormal [Recovered/Resolved]
  - Tobacco interaction [Recovered/Resolved]
  - Transaminases increased [Unknown]
  - Electrocardiogram QT prolonged [Unknown]
  - Hypotonia [Recovered/Resolved]
